FAERS Safety Report 7096471-5 (Version None)
Quarter: 2010Q4

REPORT INFORMATION
  Report Type: 
  Country: None (occurrence: None)
  Receive Date: 20101111
  Receipt Date: 20101029
  Transmission Date: 20110411
  Serious: Yes (Life-Threatening, Hospitalization, Other)
  Sender: FDA-Public Use
  Company Number: JP-AMGEN-QUU422649

PATIENT

DRUGS (12)
  1. ENBREL [Suspect]
     Indication: RHEUMATOID ARTHRITIS
     Dosage: UNK UNK, UNK
     Route: 058
     Dates: start: 20090601, end: 20100101
  2. ENBREL [Suspect]
     Route: 058
     Dates: start: 20090601, end: 20100601
  3. ENBREL [Suspect]
     Route: 058
     Dates: start: 20100101
  4. METHOTREXATE [Concomitant]
     Dosage: 8 MG, QWK
     Route: 048
     Dates: start: 19950101
  5. METHOTREXATE [Concomitant]
     Dosage: UNK UNK, UNK
     Route: 048
     Dates: start: 20080501
  6. METHOTREXATE [Concomitant]
     Dosage: 2 TABLETS
     Route: 048
     Dates: start: 20080501
  7. IANSOPRAZOLE [Concomitant]
     Dosage: UNK UNK, UNK
     Route: 048
  8. PEON [Concomitant]
     Dosage: UNK UNK, UNK
     Route: 048
  9. PEON [Concomitant]
     Dosage: UNKNOWN
     Route: 048
  10. PREDNISOLONE [Concomitant]
     Dosage: UNK UNK, UNK
     Route: 048
  11. TAKEPRON [Concomitant]
     Dosage: UNKNOWN
     Route: 048
  12. PREDNISOLONE [Concomitant]
     Dosage: UNKNOWN
     Route: 048

REACTIONS (3)
  - BREAST CANCER METASTATIC [None]
  - CONDITION AGGRAVATED [None]
  - RHEUMATOID ARTHRITIS [None]
